FAERS Safety Report 5073701-2 (Version None)
Quarter: 2006Q3

REPORT INFORMATION
  Report Type: 
  Country: None (occurrence: None)
  Receive Date: 20060808
  Receipt Date: 20050419
  Transmission Date: 20061208
  Serious: No
  Sender: FDA-Public Use
  Company Number: US-AMGEN-KDL128114

PATIENT
  Sex: Female
  Weight: 73.1 kg

DRUGS (14)
  1. PROCRIT [Suspect]
     Indication: RENAL FAILURE CHRONIC
     Route: 058
     Dates: start: 20040301, end: 20050419
  2. BLOOD CELLS, PACKED HUMAN [Concomitant]
  3. PREDNISONE [Concomitant]
     Route: 048
  4. LOPRESSOR [Concomitant]
     Route: 048
  5. SYNTHROID [Concomitant]
     Route: 048
  6. MAGNESIUM OXIDE [Concomitant]
     Route: 048
  7. CALCIUM GLUCONATE [Concomitant]
     Route: 048
  8. LASIX [Concomitant]
     Route: 048
  9. HYDRALAZINE HYDROCHLORIDE [Concomitant]
     Route: 048
  10. CELLCEPT [Concomitant]
     Dates: end: 20050415
  11. NEORAL [Concomitant]
  12. BACTROBAN [Concomitant]
     Route: 061
  13. DOXAZOSIN [Concomitant]
     Route: 048
  14. CYCLOSPORINE [Concomitant]

REACTIONS (7)
  - DIVERTICULITIS [None]
  - DRUG INEFFECTIVE [None]
  - HAEMORRHOIDS [None]
  - HYPERBILIRUBINAEMIA [None]
  - INTESTINAL POLYP [None]
  - PLATELET COUNT DECREASED [None]
  - WHITE BLOOD CELL COUNT DECREASED [None]
